FAERS Safety Report 25059366 (Version 1)
Quarter: 2025Q1

REPORT INFORMATION
  Report Type: Spontaneous
  Country: ES (occurrence: ES)
  Receive Date: 20250310
  Receipt Date: 20250310
  Transmission Date: 20250409
  Serious: Yes (Other)
  Sender: FRESENIUS KABI
  Company Number: None

PATIENT
  Age: 46 Year
  Sex: Female

DRUGS (7)
  1. PEMETREXED [Suspect]
     Active Substance: PEMETREXED
     Indication: Lung adenocarcinoma stage IV
     Route: 042
     Dates: start: 20240913, end: 20241230
  2. TAGRISSO [Suspect]
     Active Substance: OSIMERTINIB
     Indication: Lung adenocarcinoma stage IV
     Dosage: FOA: FILM-COATED TABLET
     Route: 048
     Dates: start: 20240309
  3. ZOLICO 400 MICROGRAMS tablets, 28 tablets [Concomitant]
     Indication: Product used for unknown indication
     Dosage: FOA: TABLET
     Route: 048
     Dates: start: 20240909
  4. OPTOVITE B12 1.000 MICROGRAMS INJECTABLE SOLUTION , 5 ampoules of 2 ml [Concomitant]
     Indication: Product used for unknown indication
     Dosage: FOA: SOLUTION FOR INJECTION
     Route: 042
     Dates: start: 20240909
  5. OMEPRAZOL CINFAMED 20 mg HARD CAPSULES GASTRORESISTENT EFG , 56 capsul [Concomitant]
     Indication: Product used for unknown indication
     Dosage: FOA: GASTRO-RESISTANT CAPSULE, HARD
     Route: 048
     Dates: start: 20240226
  6. CLEXANE 8.000 IU (80 mg)/ 0,8 ml INJECTABLE SOLUTION IN PREFILLED SYRI [Concomitant]
     Indication: Product used for unknown indication
     Route: 058
  7. PARACETAMOL CINFA 1 G TABLETS EFG, 40 TABLETS [Concomitant]
     Indication: Product used for unknown indication
     Dosage: FOA: TABLET
     Route: 048
     Dates: start: 20240226

REACTIONS (3)
  - Hypertransaminasaemia [Recovered/Resolved]
  - Aspartate aminotransferase increased [Recovered/Resolved]
  - Alanine aminotransferase abnormal [Recovered/Resolved]

NARRATIVE: CASE EVENT DATE: 20250121
